FAERS Safety Report 9517426 (Version 1)
Quarter: 2013Q3

REPORT INFORMATION
  Report Type: Spontaneous
  Country: GB (occurrence: GB)
  Receive Date: 20130911
  Receipt Date: 20130911
  Transmission Date: 20140515
  Serious: Yes (Other)
  Sender: FDA-Public Use
  Company Number: GB-WATSON-2013-15957

PATIENT
  Age: 27 Year
  Sex: Male

DRUGS (4)
  1. LEVETIRACETAM (UNKNOWN) [Suspect]
     Indication: PRODUCT USED FOR UNKNOWN INDICATION
     Dosage: 500 UNK, DAILY
     Route: 065
  2. SODIUM VALPROATE [Concomitant]
     Indication: PRODUCT USED FOR UNKNOWN INDICATION
     Dosage: 2400 UNK, DAILY
     Route: 065
  3. TOPIRAMATE [Concomitant]
     Indication: PRODUCT USED FOR UNKNOWN INDICATION
     Dosage: 275 UNK, DAILY
     Route: 065
  4. TOPIRAMATE [Concomitant]
     Dosage: 250 UNK, DAILY
     Route: 065

REACTIONS (1)
  - Epilepsy [Unknown]
